FAERS Safety Report 18726264 (Version 1)
Quarter: 2021Q1

REPORT INFORMATION
  Report Type: Spontaneous
  Country: US (occurrence: US)
  Receive Date: 20210111
  Receipt Date: 20210111
  Transmission Date: 20210419
  Serious: Yes (Other)
  Sender: FDA-Public Use
  Company Number: US-BAYER-2021-010449

PATIENT
  Age: 59 Year
  Sex: Male

DRUGS (5)
  1. ALKA?SELTZER HEARTBURN RELIEFCHEWS [Suspect]
     Active Substance: CALCIUM CARBONATE
     Indication: GASTROOESOPHAGEAL REFLUX DISEASE
     Route: 048
  2. COLECALCIFEROL [Suspect]
     Active Substance: CHOLECALCIFEROL
     Indication: OSTEOPENIA
     Route: 048
  3. CALCIUM CARBONATE. [Suspect]
     Active Substance: CALCIUM CARBONATE
     Indication: GASTROOESOPHAGEAL REFLUX DISEASE
  4. CALCIUM [Suspect]
     Active Substance: CALCIUM
     Indication: OSTEOPENIA
  5. TESTOSTERONE. [Concomitant]
     Active Substance: TESTOSTERONE
     Indication: EMPTY SELLA SYNDROME
     Dosage: EXOGENOUS

REACTIONS (7)
  - Metabolic alkalosis [Recovering/Resolving]
  - Product monitoring error [None]
  - Labelled drug-drug interaction medication error [None]
  - Hypomagnesaemia [Unknown]
  - Acute kidney injury [Recovered/Resolved]
  - Hypercalcaemia [Recovered/Resolved]
  - Milk-alkali syndrome [Recovering/Resolving]
